FAERS Safety Report 13406182 (Version 1)
Quarter: 2017Q2

REPORT INFORMATION
  Report Type: Spontaneous
  Country: US (occurrence: US)
  Receive Date: 20170405
  Receipt Date: 20170405
  Transmission Date: 20170830
  Serious: Yes (Death, Other)
  Sender: FDA-Public Use
  Company Number: US-SA-2017SA057289

PATIENT
  Age: 68 Year
  Sex: Male
  Weight: 140 kg

DRUGS (2)
  1. RIFAMPICIN [Suspect]
     Active Substance: RIFAMPIN
     Indication: STAPHYLOCOCCAL INFECTION
     Route: 065
  2. CEFTAROLINE [Suspect]
     Active Substance: CEFTAROLINE
     Indication: STAPHYLOCOCCAL INFECTION
     Route: 065

REACTIONS (5)
  - Staphylococcal abscess [Fatal]
  - Osteomyelitis [Fatal]
  - Paralysis [Unknown]
  - Condition aggravated [Fatal]
  - Drug ineffective [Unknown]
